FAERS Safety Report 15563792 (Version 1)
Quarter: 2018Q4

REPORT INFORMATION
  Report Type: Report from Study
  Country: None (occurrence: BR)
  Receive Date: 20181029
  Receipt Date: 20181029
  Transmission Date: 20190205
  Serious: Yes (Hospitalization)
  Sender: FDA-Public Use
  Company Number: BR-ABBVIE-18K-020-2535102-00

PATIENT
  Age: 43 Year
  Sex: Female
  Weight: 85 kg

DRUGS (2)
  1. HUMIRA [Suspect]
     Active Substance: ADALIMUMAB
     Indication: PSORIASIS
     Dosage: LOADING DOSE??WEEK 0
     Route: 058
     Dates: start: 20170328, end: 20170328
  2. HUMIRA [Suspect]
     Active Substance: ADALIMUMAB
     Route: 058

REACTIONS (8)
  - Urinary tract infection [Recovered/Resolved]
  - Malaise [Unknown]
  - Tonsillitis [Unknown]
  - Dysuria [Recovered/Resolved]
  - Haematuria [Recovered/Resolved]
  - Immunodeficiency [Recovered/Resolved]
  - Blood test abnormal [Recovered/Resolved]
  - Urticaria [Unknown]

NARRATIVE: CASE EVENT DATE: 20180518
